FAERS Safety Report 5000255-9 (Version None)
Quarter: 2006Q2

REPORT INFORMATION
  Report Type: 
  Country: None (occurrence: None)
  Receive Date: 20060511
  Receipt Date: 20031211
  Transmission Date: 20061013
  Serious: Yes (Life-Threatening, Hospitalization)
  Sender: FDA-Public Use
  Company Number: US-MERCK-0312USA01301

PATIENT
  Age: 65 Year
  Sex: Male
  Weight: 102 kg

DRUGS (19)
  1. VIOXX [Suspect]
     Indication: SPINAL COLUMN STENOSIS
     Route: 048
     Dates: start: 19990101, end: 20040930
  2. VIOXX [Suspect]
     Indication: ARTHRITIS
     Route: 048
     Dates: start: 19990101, end: 20040930
  3. LISINOPRIL [Concomitant]
     Indication: HYPERTENSION
     Route: 065
  4. MAXZIDE [Concomitant]
     Indication: HYPERTENSION
     Route: 065
  5. TRICOR [Concomitant]
     Indication: HYPERLIPIDAEMIA
     Route: 065
  6. ALLEGRA [Concomitant]
     Indication: RHINITIS ALLERGIC
     Route: 065
  7. PROSCAR [Concomitant]
     Indication: BENIGN PROSTATIC HYPERPLASIA
     Route: 048
  8. FLOMAX (MORNIFLUMATE) [Concomitant]
     Indication: BENIGN PROSTATIC HYPERPLASIA
     Route: 065
  9. PREVACID [Concomitant]
     Indication: GASTROOESOPHAGEAL REFLUX DISEASE
     Route: 065
  10. CHONDROITIN SULFATE SODIUM AND GLUCOSAMINE HYDROCHLORIDE [Concomitant]
     Route: 065
  11. ASCORBIC ACID [Concomitant]
     Route: 065
  12. VITAMIN E [Concomitant]
     Route: 065
  13. THIAMINE [Concomitant]
     Route: 065
  14. PYRIDOXINE [Concomitant]
     Route: 065
  15. ZINC (UNSPECIFIED) [Concomitant]
     Route: 065
  16. FOLIC ACID [Concomitant]
     Route: 065
  17. DOXYCYCLINE [Concomitant]
     Indication: ROSACEA
     Route: 065
  18. CARDURA [Concomitant]
     Indication: HYPERTENSION
     Route: 065
     Dates: end: 20010801
  19. ASPIRIN [Concomitant]
     Route: 065

REACTIONS (10)
  - CARPAL TUNNEL SYNDROME [None]
  - DEEP VEIN THROMBOSIS [None]
  - DEPRESSION [None]
  - DIVERTICULAR PERFORATION [None]
  - ISCHAEMIC STROKE [None]
  - LABYRINTHITIS [None]
  - OSTEOARTHRITIS [None]
  - OSTEONECROSIS [None]
  - ROTATOR CUFF SYNDROME [None]
  - TRANSIENT ISCHAEMIC ATTACK [None]
